FAERS Safety Report 7217895-9 (Version None)
Quarter: 2011Q1

REPORT INFORMATION
  Report Type: 
  Country: None (occurrence: None)
  Receive Date: 20110110
  Receipt Date: 20101229
  Transmission Date: 20110831
  Serious: Yes (Other)
  Sender: FDA-Public Use
  Company Number: US-ELI_LILLY_AND_COMPANY-US201007002327

PATIENT
  Sex: Female

DRUGS (3)
  1. FORTEO [Suspect]
     Indication: OSTEOPOROSIS
     Dosage: 20 UG, DAILY (1/D)
     Dates: end: 20100903
  2. CALCIUM [Concomitant]
  3. VITAMIN D [Concomitant]

REACTIONS (6)
  - INJECTION SITE HAEMATOMA [None]
  - OVARIAN CYST [None]
  - INJECTION SITE MASS [None]
  - ABDOMINAL TENDERNESS [None]
  - HYSTERECTOMY [None]
  - INJECTION SITE IRRITATION [None]
